FAERS Safety Report 14188184 (Version 1)
Quarter: 2017Q4

REPORT INFORMATION
  Report Type: Report from Study
  Country: US (occurrence: US)
  Receive Date: 20171114
  Receipt Date: 20171114
  Transmission Date: 20180321
  Serious: No
  Sender: FDA-Public Use
  Company Number: US-TARO-2017TAR00052

PATIENT
  Sex: Male

DRUGS (3)
  1. TRIAMCINOLONE ACETONIDE TOPICAL [Suspect]
     Active Substance: TRIAMCINOLONE ACETONIDE
     Indication: RASH
  2. UNSPECIFIED SYNTHETIC ANTIBIOTIC [Concomitant]
     Indication: RASH
  3. UNSPECIFIED SYNTHETIC ANTIBIOTIC [Concomitant]
     Indication: URTICARIA

REACTIONS (1)
  - Drug effect incomplete [Not Recovered/Not Resolved]

NARRATIVE: CASE EVENT DATE: 2016
